FAERS Safety Report 8416326-0 (Version None)
Quarter: 2012Q2

REPORT INFORMATION
  Report Type: 
  Country: None (occurrence: None)
  Receive Date: 20120606
  Receipt Date: 20120525
  Transmission Date: 20120825
  Serious: Yes (Other)
  Sender: FDA-Public Use
  Company Number: GR-SANOFI-AVENTIS-2012SA038579

PATIENT
  Age: 70 Year
  Sex: Male

DRUGS (1)
  1. CLOPIDOGREL BISULFATE [Suspect]
     Indication: ANTIPLATELET THERAPY
     Route: 065

REACTIONS (2)
  - SUBCLAVIAN ARTERY EMBOLISM [None]
  - DRUG INEFFECTIVE [None]
